FAERS Safety Report 5398917-7 (Version None)
Quarter: 2007Q3

REPORT INFORMATION
  Report Type: 
  Country: None (occurrence: None)
  Receive Date: 20070724
  Receipt Date: 20070724
  Transmission Date: 20080115
  Serious: Yes (Other)
  Sender: FDA-Public Use
  Company Number: None

PATIENT
  Age: 66 Year
  Sex: Female

DRUGS (2)
  1. PHOSPHOSODA FLAVOR NOT SPECIFIED [Suspect]
     Indication: COLONOSCOPY
     Dosage: PO
     Route: 048
     Dates: start: 20030706
  2. PHOSPHOSODA FLAVOR NOT SPECIFIED [Suspect]
     Indication: ENDOSCOPY
     Dosage: PO
     Route: 048
     Dates: start: 20030706

REACTIONS (6)
  - ANXIETY [None]
  - DIALYSIS [None]
  - DIARRHOEA [None]
  - MALAISE [None]
  - NAUSEA [None]
  - RENAL FAILURE CHRONIC [None]
